FAERS Safety Report 9997780 (Version 2)
Quarter: 2014Q1

REPORT INFORMATION
  Report Type: Report from Study
  Country: PL (occurrence: PL)
  Receive Date: 20140311
  Receipt Date: 20140320
  Transmission Date: 20141002
  Serious: Yes (Hospitalization)
  Sender: FDA-Public Use
  Company Number: PL-UCBSA-114233

PATIENT
  Age: 67 Year
  Sex: Female
  Weight: 51 kg

DRUGS (7)
  1. CERTOLIZUMAB PEGOL [Suspect]
     Indication: RHEUMATOID ARTHRITIS
     Route: 058
  2. METEX [Concomitant]
     Indication: RHEUMATOID ARTHRITIS
     Dosage: MISSED TWO DOSES ON 2-MAR-2014 AND 09-MAR-2014
     Dates: start: 20100811
  3. FOLIC ACID [Concomitant]
     Indication: PROPHYLAXIS
     Dates: start: 2006
  4. PABI-NAPROXEN [Concomitant]
     Indication: RHEUMATOID ARTHRITIS
     Dates: start: 2006, end: 20131218
  5. METYPRED [Concomitant]
     Indication: RHEUMATOID ARTHRITIS
     Dates: start: 201305
  6. BIOPRAZOL [Concomitant]
     Indication: PROPHYLAXIS AGAINST GASTROINTESTINAL ULCER
     Dates: start: 2006
  7. NEBICARD [Concomitant]
     Indication: HYPERTENSION

REACTIONS (1)
  - Altered state of consciousness [Recovered/Resolved]
